FAERS Safety Report 19692648 (Version 1)
Quarter: 2021Q3

REPORT INFORMATION
  Report Type: Spontaneous
  Country: GB (occurrence: GB)
  Receive Date: 20210812
  Receipt Date: 20210812
  Transmission Date: 20211014
  Serious: Yes (Other)
  Sender: FDA-Public Use
  Company Number: GB-TEVA-2021-GB-1940014

PATIENT
  Age: 21 Year
  Sex: Male

DRUGS (9)
  1. HALOPERIDOL. [Suspect]
     Active Substance: HALOPERIDOL
     Indication: DISSOCIATIVE DISORDER
     Route: 065
  2. DIAZEPAM. [Suspect]
     Active Substance: DIAZEPAM
     Indication: DISSOCIATIVE DISORDER
     Dosage: 10MG THREE TIMES DAILY
     Route: 065
  3. ARIPIPRAZOLE. [Suspect]
     Active Substance: ARIPIPRAZOLE
     Indication: DISSOCIATIVE DISORDER
     Route: 065
  4. SERTRALINE [Concomitant]
     Active Substance: SERTRALINE HYDROCHLORIDE
     Indication: DISSOCIATIVE DISORDER
     Dosage: 50MG ONCE EVERY MORNING.
     Route: 065
  5. LORAZEPAM. [Suspect]
     Active Substance: LORAZEPAM
     Indication: DISSOCIATIVE DISORDER
     Dosage: FOUR TIMES DAILY
     Route: 065
  6. ACYCLOVIR. [Concomitant]
     Active Substance: ACYCLOVIR
     Indication: PROPHYLAXIS
     Route: 042
  7. QUETIAPINE. [Suspect]
     Active Substance: QUETIAPINE
     Indication: DISSOCIATIVE DISORDER
     Dosage: INITIATED AT 50MG DAILY WITH A PLAN OF INCREASING IT TO 300MG IN FIVE DAYS
     Route: 065
  8. QUETIAPINE. [Suspect]
     Active Substance: QUETIAPINE
     Indication: DISSOCIATIVE DISORDER
     Route: 065
  9. ARIPIPRAZOLE. [Suspect]
     Active Substance: ARIPIPRAZOLE
     Indication: DISSOCIATIVE DISORDER
     Route: 065

REACTIONS (3)
  - Hyperprolactinaemia [Unknown]
  - Musculoskeletal stiffness [Recovering/Resolving]
  - Extrapyramidal disorder [Recovering/Resolving]
